FAERS Safety Report 10289892 (Version 1)
Quarter: 2014Q3

REPORT INFORMATION
  Report Type: Spontaneous
  Country: IT (occurrence: None)
  Receive Date: 20140707
  Receipt Date: 20140707
  Transmission Date: 20150326
  Serious: Yes (Hospitalization)
  Sender: FDA-Public Use
  Company Number: AUR-APL-2014-02547

PATIENT
  Age: 57 Year
  Sex: Female

DRUGS (3)
  1. ALIFULUS DISKUS (SERETIDE) [Concomitant]
  2. RAMIPRIL. [Suspect]
     Active Substance: RAMIPRIL
     Indication: HYPERTENSION
     Route: 048
     Dates: start: 20130701, end: 20140119
  3. BARNIDPINE HYDROCHLORIDE (BARNIDIPINE HYDROCHLORIDE) [Concomitant]

REACTIONS (2)
  - Urticaria [None]
  - Bronchospasm [None]

NARRATIVE: CASE EVENT DATE: 20131010
